FAERS Safety Report 7801030-X (Version None)
Quarter: 2011Q4

REPORT INFORMATION
  Report Type: 
  Country: None (occurrence: None)
  Receive Date: 20111007
  Receipt Date: 20110928
  Transmission Date: 20120403
  Serious: No
  Sender: FDA-Public Use
  Company Number: US-BIOGENIDEC-2010BI044763

PATIENT
  Sex: Female

DRUGS (1)
  1. TYSABRI [Suspect]
     Indication: MULTIPLE SCLEROSIS
     Route: 042
     Dates: start: 20100806, end: 20110801

REACTIONS (20)
  - HERPES ZOSTER [None]
  - FATIGUE [None]
  - PANIC ATTACK [None]
  - BACK PAIN [None]
  - PRURITUS [None]
  - DIZZINESS [None]
  - TRIGEMINAL NEURALGIA [None]
  - DERMATITIS ALLERGIC [None]
  - HYPOPNOEA [None]
  - RESPIRATORY MUSCLE WEAKNESS [None]
  - GAIT DISTURBANCE [None]
  - DYSPNOEA [None]
  - APPLICATION SITE BURN [None]
  - MUSCULAR WEAKNESS [None]
  - URINARY RETENTION [None]
  - TOOTH LOSS [None]
  - DYSGRAPHIA [None]
  - GINGIVAL DISORDER [None]
  - WHITE BLOOD CELL COUNT INCREASED [None]
  - GINGIVITIS [None]
